FAERS Safety Report 25939285 (Version 1)
Quarter: 2025Q4

REPORT INFORMATION
  Report Type: Spontaneous
  Country: CA (occurrence: CA)
  Receive Date: 20251020
  Receipt Date: 20251020
  Transmission Date: 20260118
  Serious: Yes (Other)
  Sender: AMGEN
  Company Number: CA-AMGEN-CANSP2025117006

PATIENT
  Age: 75 Year
  Sex: Male

DRUGS (2)
  1. WEZLANA [Suspect]
     Active Substance: USTEKINUMAB-AUUB
     Indication: Crohn^s disease
     Dosage: 520 MILLIGRAM, (LOADING DOSE)
     Route: 065
     Dates: start: 20250609
  2. WEZLANA [Suspect]
     Active Substance: USTEKINUMAB-AUUB
     Dosage: 90 MILLIGRAM, Q8WK
     Route: 058

REACTIONS (5)
  - Crohn^s disease [Unknown]
  - Malaise [Recovered/Resolved]
  - Epistaxis [Recovered/Resolved]
  - Diarrhoea [Recovered/Resolved]
  - Vomiting [Recovered/Resolved]

NARRATIVE: CASE EVENT DATE: 20250611
